FAERS Safety Report 5660891-3 (Version None)
Quarter: 2008Q1

REPORT INFORMATION
  Report Type: 
  Country: None (occurrence: None)
  Receive Date: 20080306
  Receipt Date: 20080222
  Transmission Date: 20080703
  Serious: Yes (Hospitalization)
  Sender: FDA-Public Use
  Company Number: 2007BI023917

PATIENT
  Age: 36 Year
  Sex: Female

DRUGS (10)
  1. AVONEX [Suspect]
     Indication: RELAPSING-REMITTING MULTIPLE SCLEROSIS
     Dosage: 30 UG; QW; IM
     Route: 030
     Dates: start: 20070906, end: 20071101
  2. METHYCOOL [Concomitant]
  3. CINAL [Concomitant]
  4. MYONAL [Concomitant]
  5. JUVELA NICOTINATE [Concomitant]
  6. DEPAS [Concomitant]
  7. LENDORMIN [Concomitant]
  8. GLYSENNID [Concomitant]
  9. MAGNESIUM OXIDE [Concomitant]
  10. INTERFERON BETA-1B [Concomitant]

REACTIONS (5)
  - ASTHENIA [None]
  - HAEMATOCRIT INCREASED [None]
  - MALAISE [None]
  - PYREXIA [None]
  - RED BLOOD CELL COUNT INCREASED [None]
